FAERS Safety Report 8551215-2 (Version None)
Quarter: 2012Q3

REPORT INFORMATION
  Report Type: 
  Country: None (occurrence: None)
  Receive Date: 20120730
  Receipt Date: 20120126
  Transmission Date: 20120928
  Serious: No
  Sender: FDA-Public Use
  Company Number: US-ALLERGAN-1201224US

PATIENT
  Age: 69 Year
  Sex: Female

DRUGS (2)
  1. LUMIGAN [Suspect]
     Indication: GLAUCOMA
     Dosage: 2 GTT, QHS
     Route: 047
     Dates: start: 20111219
  2. PROPYLENE GLYCOL [Concomitant]
     Indication: DRY EYE
     Dosage: 2 GTT, QD
     Route: 047

REACTIONS (1)
  - EYE IRRITATION [None]
